FAERS Safety Report 18489209 (Version 1)
Quarter: 2020Q4

REPORT INFORMATION
  Report Type: Spontaneous
  Country: US (occurrence: US)
  Receive Date: 20201111
  Receipt Date: 20201111
  Transmission Date: 20210114
  Serious: No
  Sender: FDA-Public Use
  Company Number: US-NEUROCRINE BIOSCIENCES INC.-2020NBI04026

PATIENT
  Age: 40 Year
  Sex: Male

DRUGS (6)
  1. OLANZAPINE. [Suspect]
     Active Substance: OLANZAPINE
     Indication: PRODUCT USED FOR UNKNOWN INDICATION
     Dosage: UNKNOWN
     Dates: start: 2020, end: 2020
  2. BUPROPION. [Concomitant]
     Active Substance: BUPROPION
  3. INGREZZA [Suspect]
     Active Substance: VALBENAZINE
     Indication: TARDIVE DYSKINESIA
     Route: 048
     Dates: start: 20200217
  4. DEPAKOTE [Concomitant]
     Active Substance: DIVALPROEX SODIUM
  5. TRIAMTERENE. [Concomitant]
     Active Substance: TRIAMTERENE
  6. ESCITALOPRAM [Concomitant]
     Active Substance: ESCITALOPRAM OXALATE

REACTIONS (4)
  - Tardive dyskinesia [Unknown]
  - Therapeutic response unexpected [Unknown]
  - Therapeutic product effect decreased [Unknown]
  - Dyskinesia [Unknown]

NARRATIVE: CASE EVENT DATE: 2020
